FAERS Safety Report 11494690 (Version 1)
Quarter: 2015Q3

REPORT INFORMATION
  Report Type: Spontaneous
  Country: US (occurrence: None)
  Receive Date: 20150910
  Receipt Date: 20150910
  Transmission Date: 20151125
  Serious: Yes (Hospitalization)
  Sender: FDA-Public Use
  Company Number: None

PATIENT
  Age: 59 Year
  Sex: Male
  Weight: 95.26 kg

DRUGS (16)
  1. TEMAZEPAM. [Concomitant]
     Active Substance: TEMAZEPAM
  2. ZOLPIDEM [Concomitant]
     Active Substance: ZOLPIDEM\ZOLPIDEM TARTRATE
  3. EQUATE SEVERE ALLERGY + SINUS HEADACHE (ACETAMIINOPHEN, PHENYLEPHRINE, + DIPHENHYDRAMINE HCL) [Concomitant]
  4. MIGRAINE RELIEF PILLS (ACETAMINOPHEN, ASPIRIN + CAFFINE) [Concomitant]
  5. FLUTICASONE PROPIONATE. [Concomitant]
     Active Substance: FLUTICASONE PROPIONATE
  6. AIRBORNE CHEWABLE TABLETS [Concomitant]
  7. COLCRYS [Concomitant]
     Active Substance: COLCHICINE
  8. ZYTERC [Concomitant]
  9. MELATONIN [Concomitant]
     Active Substance: MELATONIN
  10. METFORMIN [Concomitant]
     Active Substance: METFORMIN HYDROCHLORIDE
  11. ALLOPURINOL. [Concomitant]
     Active Substance: ALLOPURINOL
  12. NAPROXEN. [Concomitant]
     Active Substance: NAPROXEN
  13. METAMUCIL [Concomitant]
     Active Substance: PLANTAGO SEED
  14. BELSOMRA [Suspect]
     Active Substance: SUVOREXANT
     Indication: INSOMNIA
     Route: 048
     Dates: start: 20150905, end: 20150906
  15. MONTELUKAST SODIUM. [Concomitant]
     Active Substance: MONTELUKAST SODIUM
  16. FISH OIL [Concomitant]
     Active Substance: FISH OIL

REACTIONS (6)
  - Drug ineffective [None]
  - Sleep disorder [None]
  - Malaise [None]
  - Headache [None]
  - VIIth nerve paralysis [None]
  - Dysarthria [None]

NARRATIVE: CASE EVENT DATE: 20150907
